FAERS Safety Report 5691925-8 (Version None)
Quarter: 2008Q2

REPORT INFORMATION
  Report Type: 
  Country: None (occurrence: None)
  Receive Date: 20080402
  Receipt Date: 20080317
  Transmission Date: 20081010
  Serious: Yes (Death)
  Sender: FDA-Public Use
  Company Number: FR-ROCHE-555599

PATIENT

DRUGS (4)
  1. PEGASYS [Suspect]
     Indication: HEPATITIS C
     Dosage: FREQUENCY NOT STATED, TAKEN FROM MONTH 4
     Route: 065
  2. PEGASYS [Suspect]
     Dosage: FREQUENCY NOT STATED, TAKEN FROM MONTH 5
     Route: 065
  3. PEGASYS [Suspect]
     Dosage: FREQUENCY NOT STATED, TAKEN FROM MONTH 6 UNTIL MONTH 13
     Route: 065
  4. RIBAVIRIN [Suspect]
     Indication: HEPATITIS C
     Dosage: TAKEN FROM MONTH 4 TO MONTH 9
     Route: 065

REACTIONS (1)
  - HEPATITIS C [None]
